FAERS Safety Report 4320743-8 (Version None)
Quarter: 2004Q1

REPORT INFORMATION
  Report Type: 
  Country: None (occurrence: None)
  Receive Date: 20040318
  Receipt Date: 20040305
  Transmission Date: 20041129
  Serious: Yes (Hospitalization)
  Sender: FDA-Public Use
  Company Number: 2004-BP-01541NB

PATIENT
  Age: 70 Year
  Sex: Female

DRUGS (21)
  1. SIFROL (TA) [Suspect]
     Indication: PARKINSON'S DISEASE
     Dosage: 1.2 MG. PO
     Route: 048
     Dates: start: 20040205, end: 20040301
  2. CEFZON (CEFDINIR) [Suspect]
     Indication: JOINT SPRAIN
     Dosage: 300 MG, PO
     Route: 048
     Dates: start: 20040204, end: 20040301
  3. FP (TA) [Concomitant]
  4. EC DOPARL (MADOPAR) (TA) [Concomitant]
  5. ACINON (NIZATIDINE) (KA) [Concomitant]
  6. ALFAROL (ALFACALCIDOL) (KA) [Concomitant]
  7. DIART (AZOSEMIDE) (TA) [Concomitant]
  8. VOLTAREN SR (KA) [Concomitant]
  9. MOHRUS TAPE (CP) [Concomitant]
  10. ELCITONIN (ELCATONIN) (AM) [Concomitant]
  11. NEUROTROPIN (ORGAN LYSATE, STANDARDIZED ) (TA) [Concomitant]
  12. GLAKAY (MENATETRENONE) (KA) [Concomitant]
  13. ASPARA-CA (ASPARTATE CALDIUM) (TA) [Concomitant]
  14. DEPAS (ETIZOLAM) (TA) [Concomitant]
  15. NAUZELIN (DOMPERIDONE) (TA) [Concomitant]
  16. SENNOSIDE (TA) [Concomitant]
  17. BIOFERMIN (BIOFERMIN) (PL) [Concomitant]
  18. ADOFEED (FLURBIPROFEN) (CP) [Concomitant]
  19. GENTACIN (GENTAMICIN SULFATE) (CR) [Concomitant]
  20. ISODINE (POVIDONE-IODINE) (LO) [Concomitant]
  21. MUCOSTA (REBAMIPIDE) (TA) [Suspect]
     Indication: PROPHYLAXIS
     Dosage: 300 MG, PO
     Route: 048
     Dates: start: 20040204, end: 20040301

REACTIONS (3)
  - OEDEMA [None]
  - RENAL FAILURE ACUTE [None]
  - WEIGHT INCREASED [None]
